FAERS Safety Report 21068065 (Version 4)
Quarter: 2022Q3

REPORT INFORMATION
  Report Type: Spontaneous
  Country: JP (occurrence: JP)
  Receive Date: 20220712
  Receipt Date: 20220921
  Transmission Date: 20221026
  Serious: Yes (Other)
  Sender: FDA-Public Use
  Company Number: JP-ASTELLAS-2022JP010326

PATIENT
  Age: 6 Decade

DRUGS (1)
  1. XOSPATA [Suspect]
     Active Substance: GILTERITINIB
     Indication: Acute myeloid leukaemia refractory
     Route: 048
     Dates: start: 20220518, end: 202206

REACTIONS (2)
  - Acute myeloid leukaemia [Unknown]
  - Drug ineffective [Unknown]
